FAERS Safety Report 12718281 (Version 1)
Quarter: 2016Q3

REPORT INFORMATION
  Report Type: Spontaneous
  Country: US (occurrence: US)
  Receive Date: 20160906
  Receipt Date: 20160906
  Transmission Date: 20161109
  Serious: Yes (Life-Threatening, Hospitalization)
  Sender: FDA-Public Use
  Company Number: PHHY2016US119070

PATIENT
  Age: 46 Year
  Sex: Male

DRUGS (2)
  1. LOPERAMIDE [Suspect]
     Active Substance: LOPERAMIDE
     Indication: IRRITABLE BOWEL SYNDROME
     Dosage: 50 DF, QD
     Route: 065
  2. MIDAZOLAM [Concomitant]
     Active Substance: MIDAZOLAM\MIDAZOLAM HYDROCHLORIDE
     Indication: SEDATION
     Route: 065

REACTIONS (6)
  - Cardiotoxicity [Unknown]
  - Ventricular arrhythmia [Recovering/Resolving]
  - Haemodynamic instability [Unknown]
  - Electrocardiogram QT prolonged [Recovering/Resolving]
  - Cardiac arrest [Unknown]
  - Overdose [Unknown]
